FAERS Safety Report 20050028 (Version 1)
Quarter: 2021Q4

REPORT INFORMATION
  Report Type: Spontaneous
  Country: US (occurrence: None)
  Receive Date: 20211109
  Receipt Date: 20211109
  Transmission Date: 20220303
  Serious: Yes (Hospitalization)
  Sender: FDA-Public Use
  Company Number: None

PATIENT
  Sex: Female
  Weight: 50.8 kg

DRUGS (2)
  1. CARBOPLATIN [Suspect]
     Active Substance: CARBOPLATIN
     Dates: end: 20211101
  2. TAXOL [Concomitant]
     Active Substance: PACLITAXEL
     Dates: end: 20211101

REACTIONS (9)
  - Aerococcus urinae infection [None]
  - Dysphagia [None]
  - Weight decreased [None]
  - Diarrhoea [None]
  - Hypophagia [None]
  - Orthostatic hypotension [None]
  - Heart rate increased [None]
  - Radiation oesophagitis [None]
  - Toxicity to various agents [None]

NARRATIVE: CASE EVENT DATE: 20211108
